FAERS Safety Report 12718210 (Version 1)
Quarter: 2016Q3

REPORT INFORMATION
  Report Type: Spontaneous
  Country: JP (occurrence: JP)
  Receive Date: 20160906
  Receipt Date: 20160906
  Transmission Date: 20161109
  Serious: Yes (Other)
  Sender: FDA-Public Use
  Company Number: JP-PFIZER INC-2016411611

PATIENT
  Age: 45 Year
  Sex: Male

DRUGS (2)
  1. SULFASALAZINE. [Suspect]
     Active Substance: SULFASALAZINE
     Indication: STILL^S DISEASE ADULT ONSET
  2. PREDNISOLONE. [Suspect]
     Active Substance: PREDNISOLONE
     Indication: STILL^S DISEASE ADULT ONSET
     Dosage: 30 MG, DAILY

REACTIONS (1)
  - Cytopenia [Unknown]
